FAERS Safety Report 13720128 (Version 3)
Quarter: 2017Q3

REPORT INFORMATION
  Report Type: Spontaneous
  Country: US (occurrence: US)
  Receive Date: 20170706
  Receipt Date: 20170717
  Transmission Date: 20171127
  Serious: Yes (Other)
  Sender: FDA-Public Use
  Company Number: US-TEVA-783879ACC

PATIENT
  Sex: Female

DRUGS (1)
  1. PARAGARD T 380A [Suspect]
     Active Substance: COPPER
     Indication: CONTRACEPTION
     Dates: start: 201502

REACTIONS (4)
  - Pregnancy on contraceptive [Unknown]
  - Hypotension [Unknown]
  - Syncope [Unknown]
  - Maternal exposure during pregnancy [Unknown]
